FAERS Safety Report 8822196 (Version 1)
Quarter: 2012Q4

REPORT INFORMATION
  Report Type: 
  Country: US (occurrence: US)
  Receive Date: 20121003
  Receipt Date: 20121003
  Transmission Date: 20130627
  Serious: No
  Sender: FDA-Public Use
  Company Number: US-PFIZER INC-2012240729

PATIENT
  Age: 68 Year
  Sex: Male
  Weight: 79.37 kg

DRUGS (3)
  1. ARTHROTEC [Suspect]
     Indication: OSTEOARTHRITIS
     Dosage: 200mcg/50mg, 1x/day
     Route: 048
     Dates: start: 201203, end: 2012
  2. ARTHROTEC [Suspect]
     Dosage: 200mcg/50mg, 2x/day
     Route: 048
     Dates: start: 2012, end: 201209
  3. LOVASTATIN [Concomitant]
     Dosage: UNK

REACTIONS (3)
  - Drug ineffective [Unknown]
  - Blood creatinine increased [Unknown]
  - Blood urea increased [Unknown]
